FAERS Safety Report 4608184-7 (Version None)
Quarter: 2005Q2

REPORT INFORMATION
  Report Type: 
  Country: None (occurrence: None)
  Receive Date: 20050303
  Receipt Date: 20041119
  Transmission Date: 20051028
  Serious: No
  Sender: FDA-Public Use
  Company Number: 2004BI000189

PATIENT
  Sex: Female
  Weight: 52.1637 kg

DRUGS (1)
  1. AMEVIVE [Suspect]
     Indication: PSORIASIS
     Dosage: 7.5 MG;QW;IV
     Route: 042
     Dates: start: 20030101, end: 20040223

REACTIONS (1)
  - DRUG INEFFECTIVE [None]
